FAERS Safety Report 25924514 (Version 1)
Quarter: 2025Q4

REPORT INFORMATION
  Report Type: Spontaneous
  Country: US (occurrence: None)
  Receive Date: 20251012
  Receipt Date: 20251012
  Transmission Date: 20260117
  Serious: No
  Sender: FDA-CTU
  Company Number: None

PATIENT
  Age: 35 Year
  Sex: Female
  Weight: 87.75 kg

DRUGS (6)
  1. NITROFURANTOIN MONOHYDRATE MACROCRYSTALS [Suspect]
     Active Substance: NITROFURANTOIN\NITROFURANTOIN MONOHYDRATE
     Indication: Urinary tract infection
     Dosage: OTHER QUANTITY : 1 CAPSULE(S);?FREQUENCY : TWICE A DAY;?
     Route: 048
     Dates: start: 20251009, end: 20251011
  2. BUPROPION [Concomitant]
     Active Substance: BUPROPION
  3. OMEPRAZOLE [Concomitant]
     Active Substance: OMEPRAZOLE
  4. VESTURA [Concomitant]
     Active Substance: DROSPIRENONE\ETHINYL ESTRADIOL
  5. iron gummies [Concomitant]
  6. TYLENOL [Concomitant]
     Active Substance: ACETAMINOPHEN

REACTIONS (9)
  - Pyrexia [None]
  - Feeling of body temperature change [None]
  - Pain [None]
  - Dizziness [None]
  - Tinnitus [None]
  - Nausea [None]
  - Back pain [None]
  - Back pain [None]
  - Pain [None]

NARRATIVE: CASE EVENT DATE: 20251010
